FAERS Safety Report 6204568-4 (Version None)
Quarter: 2009Q2

REPORT INFORMATION
  Report Type: 
  Country: None (occurrence: None)
  Receive Date: 20090527
  Receipt Date: 20090520
  Transmission Date: 20091009
  Serious: Yes (Hospitalization)
  Sender: FDA-Public Use
  Company Number: US-PFIZER INC-2009204915

PATIENT
  Sex: Female
  Weight: 104 kg

DRUGS (13)
  1. NAPROXEN [Suspect]
     Dosage: UNK
     Route: 048
     Dates: start: 20070919, end: 20090223
  2. BLINDED *PLACEBO [Suspect]
     Dosage: UNK
     Route: 048
     Dates: start: 20070919, end: 20090223
  3. BLINDED CELECOXIB [Suspect]
     Dosage: UNK
     Route: 048
     Dates: start: 20070919, end: 20090223
  4. IBUPROFEN [Suspect]
     Dosage: UNK
     Route: 048
     Dates: start: 20070919, end: 20090223
  5. NAPROXEN [Suspect]
     Dosage: UNK
     Route: 048
     Dates: start: 20070919, end: 20090223
  6. NEXIUM [Concomitant]
     Dosage: 20 MG, 1X/DAY
     Route: 048
     Dates: start: 20070919, end: 20090223
  7. TRAMADOL [Concomitant]
     Dosage: 50 MG, Q4-6HR
     Route: 048
     Dates: start: 20081212, end: 20090511
  8. LISINOPRIL [Concomitant]
     Dosage: 20 MG, 1X/DAY
     Route: 048
     Dates: start: 20080101
  9. HYDROCHLOROTHIAZIDE [Concomitant]
     Dosage: 25 MG, 1X/DAY
     Route: 048
     Dates: start: 20080521
  10. SIMVASTATIN [Concomitant]
     Dosage: 20 MG, 1X/DAY
     Route: 048
     Dates: start: 20061228
  11. CYMBALTA [Concomitant]
     Dosage: 60 MG, 1X/DAY
     Route: 048
     Dates: start: 20071231
  12. CLARITIN [Concomitant]
     Dosage: 10 MG, 1X/DAY
     Route: 048
     Dates: start: 20081212
  13. AMITRIPTYLINE [Concomitant]
     Dosage: 25 MG, QHS
     Route: 048
     Dates: start: 20070801

REACTIONS (1)
  - OBESITY [None]
